FAERS Safety Report 9718896 (Version 1)
Quarter: 2013Q4

REPORT INFORMATION
  Report Type: Spontaneous
  Country: GB (occurrence: None)
  Receive Date: 20131126
  Receipt Date: 20131126
  Transmission Date: 20140711
  Serious: Yes (Other)
  Sender: FDA-Public Use
  Company Number: AUR-APL-2013-09756

PATIENT
  Age: 27 Year
  Sex: Female
  Weight: 78.4 kg

DRUGS (2)
  1. METFORMIN (METFORMIN) [Suspect]
     Indication: INFERTILITY
     Dosage: 1500 MG (500 MG, 3 IN 1 D)
  2. CLOMID [Suspect]
     Indication: INFERTILITY

REACTIONS (2)
  - Off label use [None]
  - Maternal exposure during pregnancy [None]
